FAERS Safety Report 4659895-9 (Version None)
Quarter: 2005Q2

REPORT INFORMATION
  Report Type: 
  Country: None (occurrence: None)
  Receive Date: 20050510
  Receipt Date: 20041213
  Transmission Date: 20051028
  Serious: Yes (Hospitalization)
  Sender: FDA-Public Use
  Company Number: PAR_0029_2005

PATIENT
  Age: 65 Year
  Sex: Male

DRUGS (9)
  1. VERAPAMIL [Suspect]
     Indication: ATRIAL FIBRILLATION
     Dosage: 2.5 MG ONCE IV
     Route: 042
     Dates: start: 20041011
  2. ATROPINE SULFATE [Suspect]
     Indication: BRADYCARDIA
     Dosage: 0.5 MG BID IV
     Dates: start: 20041011
  3. CARVEDILOL [Concomitant]
  4. EFONIDIPINE HYDROCHLORIDE [Concomitant]
  5. ACETYL SALICYLIC ACID USP BAT [Concomitant]
  6. ISOSORBIDE DINITRATE [Concomitant]
  7. GLIMEPIRIDE [Concomitant]
  8. BEZAFIBRATE [Concomitant]
  9. PHYSISALE [Concomitant]

REACTIONS (3)
  - BRADYCARDIA [None]
  - NAUSEA [None]
  - SHOCK [None]
